FAERS Safety Report 15243765 (Version 1)
Quarter: 2018Q3

REPORT INFORMATION
  Report Type: Spontaneous
  Country: US (occurrence: US)
  Receive Date: 20180712
  Receipt Date: 20180712
  Transmission Date: 20181010
  Serious: No
  Sender: FDA-Public Use
  Company Number: None

PATIENT
  Age: 64 Year
  Sex: Male

DRUGS (1)
  1. EPCLUSA [Suspect]
     Active Substance: SOFOSBUVIR\VELPATASVIR
     Dates: start: 20180712, end: 20180712

REACTIONS (5)
  - Fatigue [None]
  - Paraesthesia [None]
  - Hypoaesthesia [None]
  - Fluid retention [None]
  - Muscular weakness [None]

NARRATIVE: CASE EVENT DATE: 20180712
